FAERS Safety Report 6242106-0 (Version None)
Quarter: 2009Q2

REPORT INFORMATION
  Report Type: 
  Country: None (occurrence: None)
  Receive Date: 20090624
  Receipt Date: 20090618
  Transmission Date: 20091009
  Serious: Yes (Other)
  Sender: FDA-Public Use
  Company Number: US-JNJCH-2009016830

PATIENT
  Age: 29 Year
  Sex: Female
  Weight: 81.6 kg

DRUGS (4)
  1. BENADRYL ALLERGY KAPGELS [Suspect]
     Indication: HYPERSENSITIVITY
     Dosage: TEXT:TOTAL OF 950 MGS
     Route: 048
  2. COFFEE [Suspect]
     Indication: DRUG USE FOR UNKNOWN INDICATION
     Route: 048
  3. ALL OTHER THERAPEUTIC PRODUCTS [Suspect]
     Indication: DRUG USE FOR UNKNOWN INDICATION
     Route: 048
  4. CONTRACEPTIVE, UNSPECIFIED [Concomitant]
     Indication: CONTRACEPTION
     Dosage: TEXT:PER DAY
     Route: 065

REACTIONS (6)
  - CONDITION AGGRAVATED [None]
  - DRUG INEFFECTIVE [None]
  - DYSPNOEA [None]
  - HALLUCINATION [None]
  - LOSS OF CONSCIOUSNESS [None]
  - OVERDOSE [None]
